FAERS Safety Report 7348483 (Version 7)
Quarter: 2014Q2

REPORT INFORMATION
  Report Type: Spontaneous
  Country: US (occurrence: US)
  Receive Date: 20100408
  Receipt Date: 20140501
  Transmission Date: 20141212
  Serious: Yes (Hospitalization, Other)
  Sender: FDA-Public Use
  Company Number: US-BAYER-201018542NA

PATIENT
  Age: 32 Year
  Sex: Female
  Weight: 60.77 kg

DRUGS (10)
  1. YAZ [Suspect]
     Indication: DYSMENORRHOEA
     Dosage: (2003 TO 2007) ON AND OFF
     Route: 048
     Dates: start: 2003, end: 2007
  2. YASMIN [Suspect]
     Indication: DYSMENORRHOEA
     Dosage: (2003 TO 2007) ON AND OFF
     Route: 048
     Dates: start: 2003, end: 2007
  3. TOPROL [Concomitant]
     Dates: start: 2003, end: 20040615
  4. TOPROL [Concomitant]
     Dates: start: 2006, end: 2007
  5. TOPROL [Concomitant]
     Dosage: UNK
     Dates: start: 2006, end: 20070615
  6. NSAID^S [Concomitant]
  7. ASCORBIC ACID [Concomitant]
  8. MICROGESTIN FE [Concomitant]
  9. COUMADIN [Concomitant]
     Dosage: 8 MG, QD
  10. LYSINE [Concomitant]
     Dosage: 100 MG, UNK
     Route: 048

REACTIONS (8)
  - Deep vein thrombosis [None]
  - Pulmonary embolism [Unknown]
  - Thrombosis [Unknown]
  - Pain [Unknown]
  - Emotional distress [Unknown]
  - Vein disorder [Unknown]
  - Alopecia [Unknown]
  - Hypertrichosis [Unknown]
